FAERS Safety Report 14958542 (Version 3)
Quarter: 2021Q4

REPORT INFORMATION
  Report Type: Spontaneous
  Country: PL (occurrence: PL)
  Receive Date: 20180531
  Receipt Date: 20211115
  Transmission Date: 20220303
  Serious: Yes (Hospitalization, Other)
  Sender: FDA-Public Use
  Company Number: PL-AUROBINDO-AUR-APL-2018-028663

PATIENT
  Age: 48 Year
  Sex: Female

DRUGS (5)
  1. METOPROLOL [Suspect]
     Active Substance: METOPROLOL
     Indication: Hypertension
     Dosage: 25 MILLIGRAM, ONCE A DAY(IN THE MORNING)
     Route: 048
  2. RAMIPRIL [Suspect]
     Active Substance: RAMIPRIL
     Indication: Hypertension
     Dosage: 5 MILLIGRAM, ONCE A DAY(IN THE EVENING)
     Route: 048
  3. INDAPAMIDE [Suspect]
     Active Substance: INDAPAMIDE
     Indication: Hypertension
     Dosage: 1.5 MILLIGRAM, ONCE A DAY(IN THE MORNING)
     Route: 048
  4. LACIDIPINE [Suspect]
     Active Substance: LACIDIPINE
     Indication: Hypertension
     Dosage: 2 MILLIGRAM, DAILY, 2 MG TWICE A DAY, INCREASE IN THE EVENING DOSE TO 4 MG
     Route: 048
  5. LACIDIPINE [Suspect]
     Active Substance: LACIDIPINE
     Dosage: 4 MILLIGRAM, ONCE A DAY, IN THE EVENING
     Route: 048

REACTIONS (3)
  - Treatment noncompliance [Unknown]
  - Treatment failure [Unknown]
  - Product dose omission issue [Unknown]
